FAERS Safety Report 6522369-4 (Version None)
Quarter: 2009Q4

REPORT INFORMATION
  Report Type: 
  Country: None (occurrence: None)
  Receive Date: 20091222
  Receipt Date: 20091208
  Transmission Date: 20100525
  Serious: Yes (Other)
  Sender: FDA-Public Use
  Company Number: DSA_42167_2009

PATIENT
  Age: 75 Year
  Sex: Female

DRUGS (1)
  1. XENAZINE [Suspect]
     Indication: TARDIVE DYSKINESIA
     Dosage: 50 MG BID
     Dates: start: 20090801

REACTIONS (4)
  - COGNITIVE DISORDER [None]
  - DEMENTIA [None]
  - INCONTINENCE [None]
  - MOVEMENT DISORDER [None]
